FAERS Safety Report 24091661 (Version 1)
Quarter: 2024Q3

REPORT INFORMATION
  Report Type: Spontaneous
  Country: US (occurrence: US)
  Receive Date: 20240715
  Receipt Date: 20240715
  Transmission Date: 20241017
  Serious: Yes (Other)
  Sender: ORGANON
  Company Number: US-ORGANON-O2405USA002158

PATIENT
  Age: 36 Year
  Sex: Female

DRUGS (1)
  1. NEXPLANON [Suspect]
     Active Substance: ETONOGESTREL
     Dosage: 1 IMPLANT, LEFT UPPER ARM (NON DOMINANT)
     Route: 059
     Dates: start: 20240503, end: 20240521

REACTIONS (2)
  - Device dislocation [Recovered/Resolved]
  - Implant site pain [Unknown]

NARRATIVE: CASE EVENT DATE: 20240501
